FAERS Safety Report 9348179 (Version 1)
Quarter: 2013Q2

REPORT INFORMATION
  Report Type: Spontaneous
  Country: DE (occurrence: DE)
  Receive Date: 20130614
  Receipt Date: 20130614
  Transmission Date: 20140414
  Serious: Yes (Life-Threatening, Hospitalization, Congenital Anomaly)
  Sender: FDA-Public Use
  Company Number: DE-ABBOTT-13X-062-1104175-00

PATIENT
  Sex: 0

DRUGS (1)
  1. VALPROIC ACID [Suspect]
     Indication: MATERNAL EXPOSURE TIMING UNSPECIFIED
     Route: 064

REACTIONS (7)
  - Sepsis [Unknown]
  - Transposition of the great vessels [Unknown]
  - Coarctation of the aorta [Not Recovered/Not Resolved]
  - Congenital pulmonary valve disorder [Not Recovered/Not Resolved]
  - Atrial septal defect [Not Recovered/Not Resolved]
  - Congenital muscle absence [Not Recovered/Not Resolved]
  - Foetal exposure during pregnancy [Unknown]
